FAERS Safety Report 18643639 (Version 1)
Quarter: 2020Q4

REPORT INFORMATION
  Report Type: Spontaneous
  Country: FR (occurrence: FR)
  Receive Date: 20201221
  Receipt Date: 20201221
  Transmission Date: 20210114
  Serious: Yes (Life-Threatening, Hospitalization, Other)
  Sender: FDA-Public Use
  Company Number: FR-PFIZER INC-2020499394

PATIENT
  Age: 73 Year
  Sex: Female
  Weight: 81 kg

DRUGS (25)
  1. METOCLOPRAMIDE. [Suspect]
     Active Substance: METOCLOPRAMIDE
     Dosage: UNK
     Route: 065
  2. VITAMINS NOS [Concomitant]
     Active Substance: VITAMINS
     Dosage: UNK
  3. TEMESTA (LORAZEPAM) [Suspect]
     Active Substance: LORAZEPAM
     Indication: ANXIETY
     Dosage: 2.5 MG, 3X/DAY ((IN THE MORNING AND AT NOON IN ADDITION TO THE EVENING))
  4. AMPICILLIN [Suspect]
     Active Substance: AMPICILLIN
     Dosage: UNK
     Route: 065
  5. THERALENE [Suspect]
     Active Substance: TRIMEPRAZINE
     Indication: ANXIETY
     Dosage: UNK
     Route: 065
     Dates: start: 202010, end: 202010
  6. LEXOMIL [Suspect]
     Active Substance: BROMAZEPAM
     Dosage: 0.5 DF, 3X/DAY
     Route: 065
  7. LOSARTAN. [Concomitant]
     Active Substance: LOSARTAN
     Dosage: UNK
  8. TEMESTA (LORAZEPAM) [Suspect]
     Active Substance: LORAZEPAM
     Dosage: 7.5 MG, DAILY
     Route: 065
  9. ESOMEPRAZOLE. [Concomitant]
     Active Substance: ESOMEPRAZOLE MAGNESIUM
     Dosage: UNK
  10. SALBUTAMOL [Concomitant]
     Active Substance: ALBUTEROL
     Dosage: UNK
  11. SPASFON [PHLOROGLUCINOL;TRIMETHYLPHLOROGLUCINOL] [Concomitant]
     Active Substance: PHLOROGLUCINOL\1,3,5-TRIMETHOXYBENZENE
     Dosage: UNK
  12. MORPHINE [Suspect]
     Active Substance: MORPHINE
     Dosage: UNK
     Route: 065
     Dates: start: 20201022, end: 20201022
  13. TRAMADOL. [Suspect]
     Active Substance: TRAMADOL
     Dosage: 50 MG, 2X/DAY (EVERY 0.5 DAY)
     Route: 065
  14. MIRTAZAPINE. [Suspect]
     Active Substance: MIRTAZAPINE
     Indication: DEPRESSION
     Dosage: 30 MG, 1X/DAY (EVERY ONE DAY), IN THE EVENING
     Route: 065
  15. DIAZEPAM. [Suspect]
     Active Substance: DIAZEPAM
     Dosage: UNK
     Route: 065
  16. DOLIPRANE [Suspect]
     Active Substance: ACETAMINOPHEN
     Dosage: UNK
     Route: 065
  17. NALOXONE [Suspect]
     Active Substance: NALOXONE
     Dosage: UNK
     Route: 065
  18. TRAMADOL. [Suspect]
     Active Substance: TRAMADOL
     Dosage: 100 MG, DAILY
     Route: 065
  19. LOPERAMIDE [Suspect]
     Active Substance: LOPERAMIDE
     Dosage: UNK
     Route: 065
  20. LEXOMIL [Suspect]
     Active Substance: BROMAZEPAM
     Indication: ANXIETY
     Dosage: 1.5 DF, DAILY
     Route: 065
  21. MIANSERIN HYDROCHLORIDE [Suspect]
     Active Substance: MIANSERIN HYDROCHLORIDE
     Dosage: UNK
     Route: 065
  22. LORMETAZEPAM [Suspect]
     Active Substance: LORMETAZEPAM
     Dosage: 2 MG, 1X/DAY (2 MG, IN THE EVENING)
     Route: 065
  23. CETIRIZINE DIHYDROCHLORIDE [Suspect]
     Active Substance: CETIRIZINE HYDROCHLORIDE
     Dosage: UNK
     Route: 065
  24. LAROXYL [Suspect]
     Active Substance: AMITRIPTYLINE HYDROCHLORIDE
     Indication: DEPRESSION
     Dosage: UNK
     Route: 065
  25. LOVENOX [Concomitant]
     Active Substance: ENOXAPARIN SODIUM
     Dosage: 0.4 MG, DAILY

REACTIONS (9)
  - Renal failure [Unknown]
  - Generalised anxiety disorder [Unknown]
  - Sleep disorder [Unknown]
  - Tremor [Unknown]
  - Appetite disorder [Unknown]
  - Respiratory acidosis [Unknown]
  - Coma [Recovered/Resolved]
  - Thymus disorder [Unknown]
  - Bradypnoea [Recovered/Resolved]

NARRATIVE: CASE EVENT DATE: 20201022
